FAERS Safety Report 4714427-1 (Version None)
Quarter: 2005Q3

REPORT INFORMATION
  Report Type: 
  Country: None (occurrence: None)
  Receive Date: 20050705
  Receipt Date: 20050131
  Transmission Date: 20060218
  Serious: Yes (Life-Threatening, Hospitalization, Other)
  Sender: FDA-Public Use
  Company Number: 2004-0007887

PATIENT
  Age: 49 Year
  Sex: Female
  Weight: 67.586 kg

DRUGS (12)
  1. VIREAD [Suspect]
     Indication: HIV INFECTION
     Dosage: 300 MG, 1 IN 1 D, ORAL
     Route: 048
     Dates: start: 20040528, end: 20040629
  2. REYATAZ [Suspect]
     Indication: HIV INFECTION
     Dosage: 400 MG, 1 IN 1 D, ORAL
     Route: 048
     Dates: start: 20040624, end: 20040629
  3. DIDANOSINE [Concomitant]
  4. CELEXA [Concomitant]
  5. ACETYLSALICYLIC ACID SRT [Concomitant]
  6. RISPERDAL [Concomitant]
  7. LIPITOR [Concomitant]
  8. PEPCID [Concomitant]
  9. PROCARDIA XL [Concomitant]
  10. KLONOPIN [Concomitant]
  11. VIOXX [Concomitant]
  12. FLONASE [Concomitant]

REACTIONS (1)
  - RENAL FAILURE ACUTE [None]
